FAERS Safety Report 6862415-1 (Version None)
Quarter: 2010Q3

REPORT INFORMATION
  Report Type: 
  Country: None (occurrence: None)
  Receive Date: 20100716
  Receipt Date: 20100706
  Transmission Date: 20110219
  Serious: Yes (Other)
  Sender: FDA-Public Use
  Company Number: 2010MA000610

PATIENT
  Age: 12 Year
  Sex: Male

DRUGS (1)
  1. SERTRALINE HYDROCHLORIDE TABLETS, 50 MG (BASE) (AELLC) (SERTRALINE) [Suspect]
     Dosage: 50 MG; X1; PO
     Route: 048
     Dates: start: 20100206, end: 20100206

REACTIONS (10)
  - AGITATION [None]
  - DISCOMFORT [None]
  - FEELING ABNORMAL [None]
  - GAIT DISTURBANCE [None]
  - HEART RATE INCREASED [None]
  - HYPERSENSITIVITY [None]
  - MIDDLE INSOMNIA [None]
  - MUSCLE SPASMS [None]
  - TREMOR [None]
  - VISUAL IMPAIRMENT [None]
